FAERS Safety Report 7147364-6 (Version None)
Quarter: 2010Q4

REPORT INFORMATION
  Report Type: 
  Country: None (occurrence: None)
  Receive Date: 20101209
  Receipt Date: 20070219
  Transmission Date: 20110411
  Serious: Yes (Death)
  Sender: FDA-Public Use
  Company Number: US-ACTELION-A-US2006-14393

PATIENT

DRUGS (13)
  1. ILOPROST INHALATION SOLUTION 5UG US [Suspect]
     Indication: PULMONARY HYPERTENSION
     Dosage: 5 UG, 6 X /DAY
     Route: 055
     Dates: start: 20060503, end: 20070130
  2. AMIODARONE [Suspect]
     Indication: PRODUCT USED FOR UNKNOWN INDICATION
     Dates: start: 20060501, end: 20070130
  3. TRACLEER [Concomitant]
     Indication: PULMONARY HYPERTENSION
  4. NIFEDIPINE [Concomitant]
  5. ASPIRIN [Concomitant]
  6. SENNA [Concomitant]
  7. THEOPHYLLINE [Concomitant]
  8. SYNTHROID [Concomitant]
  9. LASIX [Concomitant]
  10. AVAPRO [Concomitant]
  11. NAPROXEN [Concomitant]
  12. ACCUPRIL [Concomitant]
  13. OXYGEN [Concomitant]

REACTIONS (2)
  - DEATH [None]
  - RASH PRURITIC [None]
